FAERS Safety Report 7617670-7 (Version None)
Quarter: 2011Q3

REPORT INFORMATION
  Report Type: 
  Country: None (occurrence: None)
  Receive Date: 20110718
  Receipt Date: 20110711
  Transmission Date: 20111222
  Serious: Yes (Other)
  Sender: FDA-Public Use
  Company Number: JP-ASTELLAS-2011JP004714

PATIENT
  Age: 62 Year
  Sex: Female

DRUGS (3)
  1. MEROPENEM [Concomitant]
     Route: 065
  2. FUNGUARD [Suspect]
     Indication: FUNGAL INFECTION
     Dosage: UNK
     Route: 065
     Dates: start: 20101001
  3. TEICOPLANIN [Concomitant]
     Dosage: UNK
     Route: 065

REACTIONS (1)
  - TRICHOSPORON INFECTION [None]
